FAERS Safety Report 8105572-1 (Version None)
Quarter: 2012Q1

REPORT INFORMATION
  Report Type: 
  Country: None (occurrence: None)
  Receive Date: 20120201
  Receipt Date: 20120127
  Transmission Date: 20120608
  Serious: Yes (Hospitalization)
  Sender: FDA-Public Use
  Company Number: SE-ROCHE-1027574

PATIENT

DRUGS (2)
  1. OXALIPLATIN [Suspect]
     Indication: COLORECTAL CANCER METASTATIC
     Dates: start: 20110102
  2. XELODA [Suspect]
     Indication: COLORECTAL CANCER METASTATIC
     Dates: start: 20110102

REACTIONS (4)
  - ABDOMINAL PAIN UPPER [None]
  - LARGE INTESTINAL HAEMORRHAGE [None]
  - ANXIETY [None]
  - RECTAL HAEMORRHAGE [None]
